FAERS Safety Report 4598280-5 (Version None)
Quarter: 2005Q1

REPORT INFORMATION
  Report Type: 
  Country: None (occurrence: None)
  Receive Date: 20050301
  Receipt Date: 20050301
  Transmission Date: 20050727
  Serious: Yes (Life-Threatening, Other)
  Sender: FDA-Public Use
  Company Number: None

PATIENT
  Sex: Male
  Weight: 77.1115 kg

DRUGS (1)
  1. ATOMOXETINE [Suspect]
     Indication: ATTENTION DEFICIT/HYPERACTIVITY DISORDER
     Dosage: 60MG  QNOON  ORAL  ; 40MG  QHS ORAL
     Route: 048
     Dates: start: 20040805, end: 20050127

REACTIONS (2)
  - CHROMATURIA [None]
  - PRURITUS GENERALISED [None]
